FAERS Safety Report 5966003-0 (Version None)
Quarter: 2008Q4

REPORT INFORMATION
  Report Type: 
  Country: None (occurrence: None)
  Receive Date: 20081125
  Receipt Date: 20081121
  Transmission Date: 20090506
  Serious: No
  Sender: FDA-Public Use
  Company Number: CA-WYE-G00489107

PATIENT
  Sex: Female
  Weight: 44.49 kg

DRUGS (1)
  1. PREMARIN [Suspect]
     Indication: MENORRHAGIA
     Route: 048
     Dates: start: 19720101

REACTIONS (15)
  - ASTHENIA [None]
  - CONFUSIONAL STATE [None]
  - DEPRESSED MOOD [None]
  - DIZZINESS [None]
  - DRUG EFFECT DECREASED [None]
  - FLATULENCE [None]
  - HEART RATE DECREASED [None]
  - HYPERHIDROSIS [None]
  - OEDEMA PERIPHERAL [None]
  - PERIPHERAL COLDNESS [None]
  - PHOTOPSIA [None]
  - PRESYNCOPE [None]
  - THERAPEUTIC RESPONSE UNEXPECTED [None]
  - VASODILATATION [None]
  - WEIGHT DECREASED [None]
